FAERS Safety Report 25750933 (Version 2)
Quarter: 2025Q3

REPORT INFORMATION
  Report Type: Spontaneous
  Country: US (occurrence: US)
  Receive Date: 20250902
  Receipt Date: 20250908
  Transmission Date: 20251020
  Serious: Yes (Other)
  Sender: PFIZER
  Company Number: US-PFIZER INC-202500172674

PATIENT
  Age: 36 Year
  Sex: Male

DRUGS (3)
  1. GEMCITABINE HYDROCHLORIDE [Suspect]
     Active Substance: GEMCITABINE HYDROCHLORIDE
     Dates: start: 202011
  2. BUSULFAN [Suspect]
     Active Substance: BUSULFAN
     Dates: start: 202011
  3. CLOFARABINE [Suspect]
     Active Substance: CLOFARABINE
     Dates: start: 202011

REACTIONS (4)
  - COVID-19 pneumonia [Recovered/Resolved]
  - Guillain-Barre syndrome [Recovered/Resolved]
  - Arthritis bacterial [Recovered/Resolved]
  - Chronic graft versus host disease [Recovered/Resolved]
